FAERS Safety Report 20838199 (Version 1)
Quarter: 2022Q2

REPORT INFORMATION
  Report Type: Spontaneous
  Country: US (occurrence: US)
  Receive Date: 20220517
  Receipt Date: 20220517
  Transmission Date: 20220720
  Serious: No
  Sender: FDA-Public Use
  Company Number: US-ALLERGAN-2210639US

PATIENT
  Sex: Female

DRUGS (1)
  1. KYBELLA [Suspect]
     Active Substance: DEOXYCHOLIC ACID
     Indication: Fat tissue increased
     Dosage: UNK, SINGLE
     Dates: start: 20201117, end: 20201117

REACTIONS (5)
  - Swelling [Unknown]
  - Weight increased [Unknown]
  - Oedema [Unknown]
  - Inflammation [Unknown]
  - Fat tissue increased [Unknown]
